FAERS Safety Report 5035806-1 (Version None)
Quarter: 2006Q2

REPORT INFORMATION
  Report Type: 
  Country: None (occurrence: None)
  Receive Date: 20060622
  Receipt Date: 20060613
  Transmission Date: 20061013
  Serious: Yes (Other)
  Sender: FDA-Public Use
  Company Number: 2006-06-1051

PATIENT
  Age: 51 Year
  Sex: Female

DRUGS (2)
  1. TEMODAR [Suspect]
     Indication: ANAPLASTIC ASTROCYTOMA
     Dosage: 140 MG QD ORAL
     Route: 048
     Dates: start: 20060515, end: 20060523
  2. RADIATION THERAPY [Concomitant]

REACTIONS (1)
  - HYPERSENSITIVITY [None]
